FAERS Safety Report 5507602-X (Version None)
Quarter: 2007Q4

REPORT INFORMATION
  Report Type: 
  Country: None (occurrence: None)
  Receive Date: 20071102
  Receipt Date: 20071023
  Transmission Date: 20080405
  Serious: Yes (Hospitalization)
  Sender: FDA-Public Use
  Company Number: UKP07000227

PATIENT

DRUGS (1)
  1. ASACOL(MESALAMINE) UNKNOWN, UNKNOWNING [Suspect]

REACTIONS (1)
  - AORTIC VALVE DISEASE [None]
